FAERS Safety Report 6057556-5 (Version None)
Quarter: 2009Q1

REPORT INFORMATION
  Report Type: 
  Country: None (occurrence: None)
  Receive Date: 20090127
  Receipt Date: 20090127
  Transmission Date: 20090719
  Serious: No
  Sender: FDA-Public Use
  Company Number: None

PATIENT
  Age: 55 Year
  Sex: Male

DRUGS (1)
  1. IOHEXOL GE HEALTHCARE [Suspect]
     Dosage: 100 ML IV
     Route: 042
     Dates: start: 20090122, end: 20090122

REACTIONS (2)
  - AURICULAR SWELLING [None]
  - EAR PRURITUS [None]
